FAERS Safety Report 23972099 (Version 2)
Quarter: 2024Q3

REPORT INFORMATION
  Report Type: Spontaneous
  Country: CA (occurrence: CA)
  Receive Date: 20240613
  Receipt Date: 20240808
  Transmission Date: 20241016
  Serious: Yes (Other)
  Sender: PFIZER
  Company Number: CA-PFIZER INC-202400191482

PATIENT
  Age: 67 Year
  Sex: Female

DRUGS (2)
  1. ABRILADA [Suspect]
     Active Substance: ADALIMUMAB-AFZB
     Indication: Crohn^s disease
     Dosage: 40 MG, EVERY 2 WEE\K
     Route: 058
     Dates: start: 20220602
  2. CALCIUM [Concomitant]
     Active Substance: CALCIUM
     Dosage: 1 DF

REACTIONS (2)
  - Spinal fracture [Recovered/Resolved with Sequelae]
  - Spinal decompression [Recovered/Resolved with Sequelae]
